FAERS Safety Report 6484380-1 (Version None)
Quarter: 2009Q4

REPORT INFORMATION
  Report Type: 
  Country: None (occurrence: None)
  Receive Date: 20091209
  Receipt Date: 20091202
  Transmission Date: 20100525
  Serious: Yes (Death, Life-Threatening, Other)
  Sender: FDA-Public Use
  Company Number: RU-SANOFI-AVENTIS-2009SA006314

PATIENT
  Age: 70 Year
  Sex: Female

DRUGS (6)
  1. OXALIPLATIN [Suspect]
     Indication: GASTRIC CANCER
     Route: 041
     Dates: start: 20080123, end: 20080123
  2. OXALIPLATIN [Suspect]
     Route: 041
  3. XELODA [Suspect]
     Indication: GASTRIC CANCER
     Route: 065
     Dates: start: 20080123
  4. XELODA [Suspect]
     Route: 065
  5. IRINOTECAN HCL [Suspect]
     Indication: DRUG USE FOR UNKNOWN INDICATION
     Route: 065
     Dates: start: 20081201, end: 20081201
  6. IRINOTECAN HCL [Suspect]
     Route: 065
     Dates: start: 20090201, end: 20090201

REACTIONS (6)
  - GASTRIC CANCER [None]
  - HEPATIC FAILURE [None]
  - HYPERBILIRUBINAEMIA [None]
  - MALIGNANT NEOPLASM PROGRESSION [None]
  - PALMAR-PLANTAR ERYTHRODYSAESTHESIA SYNDROME [None]
  - PERIPHERAL SENSORY NEUROPATHY [None]
